FAERS Safety Report 21680390 (Version 3)
Quarter: 2023Q1

REPORT INFORMATION
  Report Type: Report from Study
  Country: EG (occurrence: None)
  Receive Date: 20221205
  Receipt Date: 20230110
  Transmission Date: 20230417
  Serious: Yes (Other)
  Sender: FDA-Public Use
  Company Number: EG-Merck Healthcare KGaA-9369462

PATIENT
  Age: 44 Year
  Sex: Female

DRUGS (1)
  1. REBIF [Suspect]
     Active Substance: INTERFERON BETA-1A
     Indication: Multiple sclerosis
     Route: 058
     Dates: start: 20211204, end: 20220726

REACTIONS (8)
  - Renal artery occlusion [Unknown]
  - Coronary arterial stent insertion [Recovered/Resolved]
  - Arterial haemorrhage [Unknown]
  - Loss of consciousness [Recovered/Resolved]
  - Blood pressure abnormal [Unknown]
  - Renal neoplasm [Unknown]
  - Fluid retention [Recovered/Resolved]
  - Weight increased [Recovered/Resolved]

NARRATIVE: CASE EVENT DATE: 20221029
